FAERS Safety Report 9502566 (Version 1)
Quarter: 2013Q3

REPORT INFORMATION
  Report Type: Report from Study
  Country: JP (occurrence: JP)
  Receive Date: 20130906
  Receipt Date: 20130906
  Transmission Date: 20140515
  Serious: No
  Sender: FDA-Public Use
  Company Number: JP-JNJFOC-20130817432

PATIENT
  Sex: Male
  Weight: 167 kg

DRUGS (9)
  1. STELARA [Suspect]
     Indication: PSORIASIS
     Route: 058
     Dates: start: 20120123, end: 20120123
  2. STELARA [Suspect]
     Indication: PSORIASIS
     Route: 058
     Dates: start: 20110620, end: 20110620
  3. STELARA [Suspect]
     Indication: PSORIASIS
     Route: 058
     Dates: start: 20110524, end: 20110524
  4. STELARA [Suspect]
     Indication: PSORIASIS
     Route: 058
     Dates: start: 20120709, end: 20120709
  5. STELARA [Suspect]
     Indication: PSORIASIS
     Route: 058
     Dates: start: 20111106, end: 20111106
  6. STELARA [Suspect]
     Indication: PSORIASIS
     Route: 058
     Dates: start: 20120406, end: 20120406
  7. ANTEBATE [Concomitant]
     Route: 003
  8. OXAROL [Concomitant]
     Route: 003
  9. HYDRA [Concomitant]
     Route: 065
     Dates: start: 20110524, end: 20120320

REACTIONS (2)
  - Inappropriate schedule of drug administration [Unknown]
  - Condition aggravated [Unknown]
